FAERS Safety Report 4892724-7 (Version None)
Quarter: 2005Q4

REPORT INFORMATION
  Report Type: 
  Country: None (occurrence: None)
  Receive Date: 20051220
  Receipt Date: 20051107
  Transmission Date: 20060501
  Serious: Yes (Other)
  Sender: FDA-Public Use
  Company Number: 424093

PATIENT
  Sex: Female

DRUGS (4)
  1. BONIVA [Suspect]
     Dosage: ORAL
     Route: 048
     Dates: start: 20051021
  2. NEXIUM [Concomitant]
  3. PRILOSEC [Concomitant]
  4. MYLANTA (ALUMINIUM HYDROXIDE/CALCIUM CARBONATE/MAGNESIUM HYDROXIDE/SIM [Concomitant]

REACTIONS (2)
  - BONE PAIN [None]
  - DISCOMFORT [None]
